FAERS Safety Report 4454670-2 (Version None)
Quarter: 2004Q3

REPORT INFORMATION
  Report Type: 
  Country: None (occurrence: None)
  Receive Date: 20040920
  Receipt Date: 20040920
  Transmission Date: 20050211
  Serious: Yes (Life-Threatening, Hospitalization, Disabling)
  Sender: FDA-Public Use
  Company Number: None

PATIENT
  Age: 43 Year
  Sex: Female

DRUGS (7)
  1. LAMICTAL [Suspect]
     Indication: HEADACHE
  2. LAMICTAL [Suspect]
     Indication: PETIT MAL EPILEPSY
  3. PREMARIN [Concomitant]
  4. PROZAC [Concomitant]
  5. PREVACID [Concomitant]
  6. KLONOPIN [Concomitant]
  7. DARVOCET [Concomitant]

REACTIONS (5)
  - HEPATIC FAILURE [None]
  - RENAL DISORDER [None]
  - RENAL FAILURE ACUTE [None]
  - RESPIRATORY FAILURE [None]
  - RHABDOMYOLYSIS [None]
